FAERS Safety Report 15518332 (Version 5)
Quarter: 2019Q3

REPORT INFORMATION
  Report Type: Report from Study
  Country: BR (occurrence: BR)
  Receive Date: 20181017
  Receipt Date: 20190802
  Transmission Date: 20191004
  Serious: Yes (Disabling)
  Sender: FDA-Public Use
  Company Number: PHHY2018BR125731

PATIENT
  Age: 63 Year
  Sex: Female
  Weight: 72 kg

DRUGS (5)
  1. COSENTYX [Suspect]
     Active Substance: SECUKINUMAB
     Dosage: UNK
     Route: 065
     Dates: start: 20190203
  2. XOLAIR [Suspect]
     Active Substance: OMALIZUMAB
     Indication: PRODUCT USED FOR UNKNOWN INDICATION
     Route: 065
  3. FLUCONAZOL [Concomitant]
     Active Substance: FLUCONAZOLE
     Indication: PRODUCT USED FOR UNKNOWN INDICATION
     Route: 065
  4. COSENTYX [Suspect]
     Active Substance: SECUKINUMAB
     Indication: PSORIATIC ARTHROPATHY
     Dosage: 300 MG, QMO
     Route: 058
     Dates: start: 20170710
  5. COSENTYX [Suspect]
     Active Substance: SECUKINUMAB
     Dosage: UNK
     Route: 065
     Dates: start: 20180912

REACTIONS (13)
  - Tendonitis [Unknown]
  - Arthropathy [Recovering/Resolving]
  - Osteoarthritis [Unknown]
  - Psoriasis [Unknown]
  - Tissue infiltration [Unknown]
  - Somnolence [Unknown]
  - Joint destruction [Unknown]
  - Gait inability [Unknown]
  - Macule [Not Recovered/Not Resolved]
  - Joint effusion [Unknown]
  - Weight decreased [Unknown]
  - Arthralgia [Unknown]
  - Paraesthesia [Unknown]

NARRATIVE: CASE EVENT DATE: 201809
